FAERS Safety Report 12885863 (Version 1)
Quarter: 2016Q4

REPORT INFORMATION
  Report Type: Spontaneous
  Country: US (occurrence: US)
  Receive Date: 20161025
  Receipt Date: 20161025
  Transmission Date: 20170207
  Serious: Yes (Hospitalization)
  Sender: FDA-Public Use
  Company Number: None

PATIENT
  Age: 84 Year
  Sex: Male

DRUGS (9)
  1. ESBRIET [Suspect]
     Active Substance: PIRFENIDONE
     Indication: IDIOPATHIC PULMONARY FIBROSIS
     Route: 048
     Dates: start: 20150430
  2. ESBRIET [Suspect]
     Active Substance: PIRFENIDONE
     Indication: INTERSTITIAL LUNG DISEASE
     Route: 048
     Dates: start: 20150430
  3. TRILEPTAL [Concomitant]
     Active Substance: OXCARBAZEPINE
  4. ZINC [Concomitant]
     Active Substance: ZINC\ZINC CHLORIDE
  5. AMLODIPINE [Concomitant]
     Active Substance: AMLODIPINE BESYLATE
  6. LASIX [Concomitant]
     Active Substance: FUROSEMIDE
  7. AMIODARONE [Concomitant]
     Active Substance: AMIODARONE
  8. FINASTERIDE. [Concomitant]
     Active Substance: FINASTERIDE
  9. METOPROLOL. [Concomitant]
     Active Substance: METOPROLOL

REACTIONS (4)
  - Decreased appetite [None]
  - Weight decreased [None]
  - Therapy cessation [None]
  - Aortic rupture [None]

NARRATIVE: CASE EVENT DATE: 20161017
